FAERS Safety Report 7973698-9 (Version None)
Quarter: 2011Q4

REPORT INFORMATION
  Report Type: 
  Country: None (occurrence: None)
  Receive Date: 20111123
  Receipt Date: 20110516
  Transmission Date: 20120403
  Serious: Yes (Other)
  Sender: FDA-Public Use
  Company Number: 919400

PATIENT
  Age: 65 Year
  Sex: Male
  Weight: 135 kg

DRUGS (4)
  1. (INSULIN) [Concomitant]
  2. VANCOMYCIN HCL [Suspect]
     Indication: CELLULITIS
     Dosage: SEE IMAGE
     Route: 042
     Dates: start: 20110513, end: 20110513
  3. VANCOMYCIN HCL [Suspect]
     Indication: CELLULITIS
     Dosage: SEE IMAGE
     Route: 042
     Dates: start: 20110511, end: 20110511
  4. VANCOMYCIN HCL [Suspect]
     Indication: CELLULITIS
     Dosage: SEE IMAGE
     Route: 042
     Dates: start: 20110512, end: 20110512

REACTIONS (1)
  - BLOOD CREATININE INCREASED [None]
